FAERS Safety Report 14940307 (Version 1)
Quarter: 2018Q2

REPORT INFORMATION
  Report Type: Report from Study
  Country: US (occurrence: US)
  Receive Date: 20180525
  Receipt Date: 20180525
  Transmission Date: 20180711
  Serious: Yes (Hospitalization, Other)
  Sender: FDA-Public Use
  Company Number: US-SA-2018SA138684

PATIENT
  Age: 70 Year
  Sex: Male

DRUGS (15)
  1. ALPRAZOLAM. [Concomitant]
     Active Substance: ALPRAZOLAM
     Indication: SLEEP DISORDER
     Dosage: 0.25 MG, PRN
  2. ATORVASTATIN [Concomitant]
     Active Substance: ATORVASTATIN
     Dosage: 10 MG, HS
  3. FUROSEMIDE. [Concomitant]
     Active Substance: FUROSEMIDE
     Dosage: 40 MG, QD
  4. SPIRONOLACTONE. [Concomitant]
     Active Substance: SPIRONOLACTONE
     Dosage: 25 MG, QD
  5. METFORMIN [Concomitant]
     Active Substance: METFORMIN HYDROCHLORIDE
     Dosage: 1000 MG, QD
  6. WARFARIN [Concomitant]
     Active Substance: WARFARIN
     Dosage: 5 MG, QD
  7. AMARYL [Suspect]
     Active Substance: GLIMEPIRIDE
     Indication: TYPE 2 DIABETES MELLITUS
     Dosage: 2 MG, BID
     Route: 048
     Dates: start: 20150720
  8. ACEBUTOLOL [Concomitant]
     Active Substance: ACEBUTOLOL
     Dosage: 200 MG, BID
  9. AMIODARONE [Concomitant]
     Active Substance: AMIODARONE
     Dosage: 200 MG, QD
  10. CENTRUM SILVER [ASCORBIC ACID;BIOTIN;CALCIUM;CALCIUM PHOSPHATE DIBASIC [Concomitant]
     Dosage: 1 DF, QD
  11. INSULIN GLARGINE [Suspect]
     Active Substance: INSULIN GLARGINE
  12. LISINOPRIL. [Concomitant]
     Active Substance: LISINOPRIL
     Dosage: 5 MG, QD
  13. AMARYL [Suspect]
     Active Substance: GLIMEPIRIDE
     Indication: TYPE 2 DIABETES MELLITUS
     Dosage: 1 MG, QD
     Route: 048
     Dates: start: 20150720
  14. TYLENOL [Concomitant]
     Active Substance: ACETAMINOPHEN
     Indication: PAIN
     Dosage: 650 MG, Q6H
  15. MEXILETINE [MEXILETINE HYDROCHLORIDE] [Concomitant]
     Dosage: 200 MG, BID

REACTIONS (5)
  - Dyspnoea [Unknown]
  - Sepsis [Unknown]
  - Chills [Unknown]
  - Asthenia [Unknown]
  - Hypoglycaemia [Unknown]

NARRATIVE: CASE EVENT DATE: 20180114
